FAERS Safety Report 12066769 (Version 1)
Quarter: 2016Q1

REPORT INFORMATION
  Report Type: Spontaneous
  Country: US (occurrence: None)
  Receive Date: 20160210
  Receipt Date: 20160210
  Transmission Date: 20160526
  Serious: Yes (Life-Threatening, Hospitalization)
  Sender: FDA-Public Use
  Company Number: None

PATIENT
  Age: 51 Year
  Sex: Female

DRUGS (1)
  1. AMOXICILLIN/CLAVULANATE 825/125 SANDOZ [Suspect]
     Active Substance: AMOXICILLIN\CLAVULANATE POTASSIUM
     Indication: BRONCHITIS
     Route: 048

REACTIONS (9)
  - Granuloma [None]
  - Aspartate aminotransferase increased [None]
  - Asthenia [None]
  - Liver injury [None]
  - Oesophageal injury [None]
  - Alanine aminotransferase increased [None]
  - Fatigue [None]
  - Peripheral swelling [None]
  - Drug hypersensitivity [None]
